FAERS Safety Report 6656475-0 (Version None)
Quarter: 2010Q1

REPORT INFORMATION
  Report Type: 
  Country: None (occurrence: None)
  Receive Date: 20100329
  Receipt Date: 20100319
  Transmission Date: 20100710
  Serious: Yes (Other)
  Sender: FDA-Public Use
  Company Number: FR-PFIZER INC-2009285507

PATIENT
  Age: 67 Year
  Sex: Male

DRUGS (8)
  1. CAMPTOSAR [Suspect]
     Indication: GASTRIC CANCER
     Dosage: UNK, CYCLIC
     Route: 042
     Dates: start: 20090902, end: 20090903
  2. FLUOROURACIL [Suspect]
     Indication: GASTRIC CANCER
     Dosage: UNK, CYCLIC
     Dates: start: 20090902, end: 20090903
  3. FOLINIC ACID [Suspect]
     Indication: GASTRIC CANCER
     Dosage: UNK, CYCLIC
     Route: 042
     Dates: start: 20090902, end: 20090903
  4. SOTALEX [Concomitant]
     Dosage: 1 DF, 2X/DAY
     Route: 048
  5. CRESTOR [Concomitant]
     Dosage: 1 DF, 1X/DAY
     Route: 048
  6. NEXIUM [Concomitant]
     Dosage: 1 DF, 1X/DAY
     Route: 048
  7. KARDEGIC [Concomitant]
     Dosage: 1 DF, 1X/DAY
     Route: 048
  8. ATACAND [Concomitant]
     Dosage: 1 DF, 2X/DAY
     Route: 048

REACTIONS (1)
  - TOXIC SKIN ERUPTION [None]
